FAERS Safety Report 7734875-5 (Version None)
Quarter: 2011Q3

REPORT INFORMATION
  Report Type: 
  Country: None (occurrence: None)
  Receive Date: 20110907
  Receipt Date: 20110824
  Transmission Date: 20111222
  Serious: Yes (Hospitalization, Other)
  Sender: FDA-Public Use
  Company Number: PHHY2011BR47946

PATIENT
  Age: 64 Year
  Sex: Female

DRUGS (5)
  1. ASPIRIN [Concomitant]
     Indication: CARDIOVASCULAR INSUFFICIENCY
     Dosage: UNK ,
     Route: 048
     Dates: start: 20050101
  2. AZUKON [Concomitant]
     Indication: DIABETES MELLITUS
     Dosage: 25 MG, QD
     Route: 048
     Dates: start: 20100101
  3. LEVOTHYROXINE SODIUM [Concomitant]
     Indication: HYPERTHYROIDISM
     Dosage: 84 MG, QD
     Route: 048
     Dates: start: 20050101
  4. DIOVAN [Suspect]
     Indication: HYPERTENSION
     Dosage: 320 MG, QD
     Route: 048
     Dates: start: 20110501
  5. LEXOTAN [Suspect]
     Dosage: UNK ,

REACTIONS (5)
  - MALAISE [None]
  - SOMNOLENCE [None]
  - DRUG INEFFECTIVE [None]
  - INFARCTION [None]
  - BLOOD PRESSURE FLUCTUATION [None]
